FAERS Safety Report 17171014 (Version 1)
Quarter: 2019Q4

REPORT INFORMATION
  Report Type: Spontaneous
  Country: SE (occurrence: SE)
  Receive Date: 20191218
  Receipt Date: 20191218
  Transmission Date: 20200122
  Serious: Yes (Hospitalization, Other)
  Sender: FDA-Public Use
  Company Number: SE-SA-2019SA345225

PATIENT
  Sex: Male

DRUGS (4)
  1. STILNOCT [Suspect]
     Active Substance: ZOLPIDEM TARTRATE
     Dosage: 60 MG, UNK
     Route: 048
     Dates: start: 20180411, end: 20180411
  2. ANTABUSE [Suspect]
     Active Substance: DISULFIRAM
     Dosage: UNK (6 ST)
     Route: 048
     Dates: start: 20180411, end: 20180411
  3. PROPAVAN [Suspect]
     Active Substance: PROPIOMAZINE
     Dosage: 150 MG
     Route: 048
     Dates: start: 20180411, end: 20180411
  4. CONCERTA [Suspect]
     Active Substance: METHYLPHENIDATE HYDROCHLORIDE
     Dosage: 6 ST, MAXIMUM 320 MG
     Route: 048
     Dates: start: 20180411, end: 20180411

REACTIONS (2)
  - Intentional self-injury [Unknown]
  - Intentional overdose [Unknown]

NARRATIVE: CASE EVENT DATE: 20180411
